FAERS Safety Report 4768034-5 (Version None)
Quarter: 2005Q3

REPORT INFORMATION
  Report Type: 
  Country: None (occurrence: None)
  Receive Date: 20050913
  Receipt Date: 20050826
  Transmission Date: 20060218
  Serious: Yes (Hospitalization)
  Sender: FDA-Public Use
  Company Number: 2005BI011745

PATIENT
  Age: 42 Year
  Sex: Female
  Weight: 67.586 kg

DRUGS (2)
  1. AVONEX [Suspect]
     Indication: RELAPSING-REMITTING MULTIPLE SCLEROSIS
     Dosage: 30 UG;QW;IM
     Route: 030
     Dates: start: 20010101
  2. ACIPHEX [Concomitant]

REACTIONS (7)
  - ASTHENIA [None]
  - CHILLS [None]
  - ESCHERICHIA URINARY TRACT INFECTION [None]
  - HYPERHIDROSIS [None]
  - MENINGITIS ASEPTIC [None]
  - PHOTOPHOBIA [None]
  - VISION BLURRED [None]
